FAERS Safety Report 4994725-7 (Version None)
Quarter: 2006Q2

REPORT INFORMATION
  Report Type: 
  Country: None (occurrence: None)
  Receive Date: 20060505
  Receipt Date: 20060427
  Transmission Date: 20061013
  Serious: Yes (Death)
  Sender: FDA-Public Use
  Company Number: FR-ABBOTT-06P-056-0331913-00

PATIENT
  Age: 60 Year
  Sex: Female
  Weight: 89 kg

DRUGS (7)
  1. HUMIRA [Suspect]
     Indication: RHEUMATOID ARTHRITIS
     Route: 058
     Dates: end: 20051001
  2. HUMIRA [Suspect]
     Route: 058
     Dates: start: 20051201, end: 20060315
  3. PREDNISONE TAB [Concomitant]
     Indication: DRUG USE FOR UNKNOWN INDICATION
  4. AZATHIOPRINE [Concomitant]
     Indication: DRUG USE FOR UNKNOWN INDICATION
  5. ALPRAZOLAM [Concomitant]
     Indication: DRUG USE FOR UNKNOWN INDICATION
  6. POTASSIUM CHLORIDE [Concomitant]
     Indication: DRUG USE FOR UNKNOWN INDICATION
  7. NICARDIPINE [Concomitant]
     Indication: DRUG USE FOR UNKNOWN INDICATION

REACTIONS (4)
  - ABDOMINAL PAIN [None]
  - BRONCHITIS [None]
  - DIARRHOEA [None]
  - VOMITING [None]
